FAERS Safety Report 23997936 (Version 1)
Quarter: 2024Q2

REPORT INFORMATION
  Report Type: Spontaneous
  Country: US (occurrence: US)
  Receive Date: 20240621
  Receipt Date: 20240621
  Transmission Date: 20240715
  Serious: Yes (Death)
  Sender: FDA-Public Use
  Company Number: US-BIOCON BIOLOGICS LIMITED-BBL2024004437

PATIENT

DRUGS (1)
  1. FULPHILA [Suspect]
     Active Substance: PEGFILGRASTIM-JMDB
     Indication: Colon cancer
     Dosage: UNK
     Route: 065
     Dates: start: 20240217, end: 20240315

REACTIONS (1)
  - Death [Fatal]
